FAERS Safety Report 25095526 (Version 1)
Quarter: 2025Q1

REPORT INFORMATION
  Report Type: Report from Study
  Country: US (occurrence: US)
  Receive Date: 20250319
  Receipt Date: 20250319
  Transmission Date: 20250408
  Serious: No
  Sender: JOHNSON AND JOHNSON
  Company Number: US-JNJFOC-20250276875

PATIENT
  Age: 49 Year
  Sex: Female

DRUGS (1)
  1. TREMFYA [Suspect]
     Active Substance: GUSELKUMAB
     Indication: Colitis ulcerative
     Dosage: STRENGTH: 200.00 MG / 2.00 ML
     Route: 058

REACTIONS (3)
  - Injection site haemorrhage [Unknown]
  - Device deployment issue [Unknown]
  - Product storage error [Unknown]

NARRATIVE: CASE EVENT DATE: 20250227
